FAERS Safety Report 18473124 (Version 2)
Quarter: 2020Q4

REPORT INFORMATION
  Report Type: Spontaneous
  Country: GR (occurrence: GR)
  Receive Date: 20201106
  Receipt Date: 20201118
  Transmission Date: 20210114
  Serious: Yes (Death, Other)
  Sender: FDA-Public Use
  Company Number: GR-PFIZER INC-2020426469

PATIENT
  Age: 65 Year
  Sex: Female

DRUGS (2)
  1. ETANERCEPT [Suspect]
     Active Substance: ETANERCEPT
     Indication: RHEUMATOID ARTHRITIS
     Dosage: UNK
     Route: 042
  2. METHOTREXATE SODIUM. [Suspect]
     Active Substance: METHOTREXATE SODIUM
     Indication: RHEUMATOID ARTHRITIS
     Dosage: UNK

REACTIONS (13)
  - Cardiac failure [Fatal]
  - Acute pulmonary oedema [Unknown]
  - Off label use [Unknown]
  - Endocarditis [Unknown]
  - Endocarditis enterococcal [Unknown]
  - Cardiac disorder [Unknown]
  - Mitral valve incompetence [Unknown]
  - Tricuspid valve incompetence [Unknown]
  - Hypotension [Unknown]
  - Fistula [Unknown]
  - Cardiac pseudoaneurysm [Unknown]
  - Renal impairment [Unknown]
  - Product use issue [Unknown]
